FAERS Safety Report 7675028-9 (Version None)
Quarter: 2011Q3

REPORT INFORMATION
  Report Type: 
  Country: None (occurrence: None)
  Receive Date: 20110810
  Receipt Date: 20110808
  Transmission Date: 20111222
  Serious: Yes (Other)
  Sender: FDA-Public Use
  Company Number: DE-CEPHALON-2009000107

PATIENT
  Sex: Male

DRUGS (4)
  1. MODAFINIL [Suspect]
     Indication: LISTLESS
  2. MODAFINIL [Suspect]
     Indication: SOMNOLENCE
     Route: 048
  3. RITALIN [Concomitant]
     Indication: LISTLESS
  4. RITALIN [Concomitant]
     Indication: SOMNOLENCE

REACTIONS (4)
  - DRUG DEPENDENCE [None]
  - DRUG ABUSE [None]
  - OFF LABEL USE [None]
  - HEADACHE [None]
